FAERS Safety Report 24541422 (Version 1)
Quarter: 2024Q4

REPORT INFORMATION
  Report Type: Spontaneous
  Country: JP (occurrence: JP)
  Receive Date: 20241023
  Receipt Date: 20241023
  Transmission Date: 20250114
  Serious: Yes (Life-Threatening, Hospitalization)
  Sender: Alora Pharma
  Company Number: JP-ACELLA PHARMACEUTICALS, LLC-2024ALO00494

PATIENT
  Age: 19 Year
  Sex: Female

DRUGS (14)
  1. DEXTROMETHORPHAN [Suspect]
     Active Substance: DEXTROMETHORPHAN
     Indication: Euphoric mood
     Dosage: TABLET; 500 MG TO 1000 MG INTERMITTENTLY
     Route: 048
  2. DEXTROMETHORPHAN [Suspect]
     Active Substance: DEXTROMETHORPHAN
     Indication: Hallucination
     Dosage: TABLET, 4800 MG; 320 TABLETS
  3. DEXTROMETHORPHAN [Suspect]
     Active Substance: DEXTROMETHORPHAN
     Indication: Suicide attempt
  4. ESCITALOPRAM [Suspect]
     Active Substance: ESCITALOPRAM OXALATE
     Indication: Depression
     Dosage: 5 MG
  5. ESCITALOPRAM [Suspect]
     Active Substance: ESCITALOPRAM OXALATE
     Indication: Eating disorder
  6. UNSPECIFIED INGREDIENT [Suspect]
     Active Substance: UNSPECIFIED INGREDIENT
  7. LITHIUM [Concomitant]
     Active Substance: LITHIUM
     Indication: Eating disorder
     Dosage: 800 MG
  8. LITHIUM [Concomitant]
     Active Substance: LITHIUM
     Indication: Depression
  9. IBUPROFEN [Concomitant]
     Active Substance: IBUPROFEN
     Dosage: 1800 MG
  10. ACETAMINOPHEN [Concomitant]
     Active Substance: ACETAMINOPHEN
     Dosage: 600 MG
  11. CAFFEINE [Concomitant]
     Active Substance: CAFFEINE
     Dosage: 950 MG
  12. DIHYDROCODEINE PHOSPHATE [Concomitant]
     Active Substance: DIHYDROCODEINE PHOSPHATE
     Dosage: 150 MG
  13. METHYLEPHEDRINE HYDROCHLORIDE [Concomitant]
     Active Substance: METHYLEPHEDRINE HYDROCHLORIDE
     Dosage: 400 MG
  14. CHLORPHENIRAMINE MALEATE [Concomitant]
     Active Substance: CHLORPHENIRAMINE MALEATE
     Dosage: 60 MG

REACTIONS (4)
  - Toxic encephalopathy [Recovered/Resolved]
  - Overdose [Recovered/Resolved]
  - Suicide attempt [Recovered/Resolved]
  - Drug interaction [Recovered/Resolved]
